FAERS Safety Report 15574737 (Version 4)
Quarter: 2021Q2

REPORT INFORMATION
  Report Type: Spontaneous
  Country: US (occurrence: US)
  Receive Date: 20181101
  Receipt Date: 20210617
  Transmission Date: 20210716
  Serious: No
  Sender: FDA-Public Use
  Company Number: US-VERTEX PHARMACEUTICALS-2018-007802

PATIENT
  Age: 25 Year
  Sex: Female

DRUGS (1)
  1. ORKAMBI [Suspect]
     Active Substance: IVACAFTOR\LUMACAFTOR
     Indication: CYSTIC FIBROSIS
     Dosage: UNKNOWN
     Route: 048
     Dates: start: 2015

REACTIONS (4)
  - Drug interaction [Recovered/Resolved]
  - Heavy menstrual bleeding [Recovered/Resolved]
  - Haemoptysis [Recovered/Resolved]
  - Menstruation irregular [Recovered/Resolved]
